FAERS Safety Report 4527350-2 (Version None)
Quarter: 2004Q4

REPORT INFORMATION
  Report Type: 
  Country: None (occurrence: None)
  Receive Date: 20041214
  Receipt Date: 20041214
  Transmission Date: 20050328
  Serious: Yes (Life-Threatening, Hospitalization)
  Sender: FDA-Public Use
  Company Number: None

PATIENT
  Age: 64 Year
  Sex: Male
  Weight: 82.3 kg

DRUGS (3)
  1. OPRELVEKIN [Suspect]
  2. ETOPOSIDE CAP [Concomitant]
  3. CARBOPLATIN [Concomitant]

REACTIONS (1)
  - ATRIAL FIBRILLATION [None]
